FAERS Safety Report 4985991-2 (Version None)
Quarter: 2006Q2

REPORT INFORMATION
  Report Type: 
  Country: None (occurrence: None)
  Receive Date: 20060421
  Receipt Date: 20060410
  Transmission Date: 20061013
  Serious: Yes (Other)
  Sender: FDA-Public Use
  Company Number: 223986

PATIENT
  Age: 60 Year
  Sex: Female

DRUGS (9)
  1. METALYSE          (TENECETEPLASE) [Suspect]
     Indication: ACUTE MYOCARDIAL INFARCTION
     Dosage: 6000 UNIT, INTRAVENOUS
     Route: 042
     Dates: start: 20051221, end: 20051221
  2. ASPIRIN [Concomitant]
  3. HEPARIN SODIUM [Concomitant]
  4. CLOPIDOGREL (CLOPIDOGREL BISULFATE) [Concomitant]
  5. TICLODONE (TICLOPIDINE HYDROCHLORIDE) [Concomitant]
  6. BETA BLOCKERS (BETA BLOCKERS NOS) [Concomitant]
  7. NITRATES NOS [Concomitant]
  8. STATINS NOS [Concomitant]
  9. INOTROPIC AGENT (INOTROPIC AGENTS) [Concomitant]

REACTIONS (2)
  - CARDIOGENIC SHOCK [None]
  - VENTRICULAR FIBRILLATION [None]
